FAERS Safety Report 25276271 (Version 1)
Quarter: 2025Q2

REPORT INFORMATION
  Report Type: Spontaneous
  Country: US (occurrence: US)
  Receive Date: 20250507
  Receipt Date: 20250507
  Transmission Date: 20250717
  Serious: Yes (Other)
  Sender: ABBVIE
  Company Number: US-ABBVIE-6265104

PATIENT
  Sex: Male

DRUGS (1)
  1. DEPAKOTE [Suspect]
     Active Substance: DIVALPROEX SODIUM
     Indication: Mania
     Route: 048

REACTIONS (7)
  - Femur fracture [Unknown]
  - Fall [Unknown]
  - Headache [Recovered/Resolved]
  - Arthralgia [Recovered/Resolved]
  - Myalgia [Unknown]
  - Depression [Unknown]
  - Anxiety [Unknown]
